FAERS Safety Report 13948810 (Version 7)
Quarter: 2022Q1

REPORT INFORMATION
  Report Type: Report from Study
  Country: CN (occurrence: None)
  Receive Date: 20170908
  Receipt Date: 20220317
  Transmission Date: 20220423
  Serious: Yes (Hospitalization)
  Sender: FDA-Public Use
  Company Number: CN-ROCHE-1988659

PATIENT
  Age: 54 Year
  Sex: Male
  Weight: 70 kg

DRUGS (5)
  1. ATEZOLIZUMAB [Suspect]
     Active Substance: ATEZOLIZUMAB
     Indication: Non-small cell lung cancer
     Dosage: DATE OF MOST RECENT DOSE (1200MG) OF ATEZOLIZUMAB: 10/AUG/2017
     Route: 042
     Dates: start: 20160912
  2. CEFACLOR [Concomitant]
     Active Substance: CEFACLOR
     Indication: Upper respiratory tract infection
     Dates: start: 20170427
  3. AMBROXOL HYDROCHLORIDE [Concomitant]
     Active Substance: AMBROXOL HYDROCHLORIDE
     Indication: Upper respiratory tract infection
     Dates: start: 20170427
  4. MEXILETINE HYDROCHLORIDE [Concomitant]
     Active Substance: MEXILETINE HYDROCHLORIDE
     Indication: Ventricular arrhythmia
     Dates: start: 20170904, end: 20170905
  5. AMIODARONE HYDROCHLORIDE [Concomitant]
     Active Substance: AMIODARONE HYDROCHLORIDE
     Indication: Ventricular arrhythmia
     Dates: start: 20170911, end: 20170917

REACTIONS (1)
  - Blood creatine phosphokinase increased [Recovered/Resolved]

NARRATIVE: CASE EVENT DATE: 20170831
